FAERS Safety Report 6661383-5 (Version None)
Quarter: 2010Q1

REPORT INFORMATION
  Report Type: 
  Country: None (occurrence: None)
  Receive Date: 20100331
  Receipt Date: 20100324
  Transmission Date: 20100710
  Serious: Yes (Hospitalization)
  Sender: FDA-Public Use
  Company Number: PHHY2010TR18988

PATIENT
  Sex: Male

DRUGS (1)
  1. EXELON [Suspect]
     Dosage: EXELON PATCH 10, 18MG/10CM2
     Route: 062

REACTIONS (2)
  - ACCIDENTAL OVERDOSE [None]
  - HEART RATE INCREASED [None]
